FAERS Safety Report 5468895-0 (Version None)
Quarter: 2007Q3

REPORT INFORMATION
  Report Type: 
  Country: None (occurrence: None)
  Receive Date: 20070926
  Receipt Date: 20070917
  Transmission Date: 20080115
  Serious: Yes (Hospitalization)
  Sender: FDA-Public Use
  Company Number: DE-SHR-DE-2007-032867

PATIENT
  Age: 68 Year
  Sex: Female
  Weight: 63.5 kg

DRUGS (11)
  1. BETASERON [Suspect]
     Indication: PROGRESSIVE MULTIPLE SCLEROSIS
     Dosage: 8 MIU, EVERY 2D
     Route: 058
     Dates: start: 20060101
  2. METOPROLOL SUCCINATE [Concomitant]
     Dosage: .5 TAB(S), 2X/DAY
  3. NEXIUM [Concomitant]
     Dosage: 20 MG, 1X/DAY
  4. TRAMADOL HCL [Concomitant]
     Dosage: 20 DROPS, 1X/DAY
  5. SIRDALUD [Concomitant]
     Dosage: UNK, 3X/DAY
  6. SIFROL [Concomitant]
     Dosage: UNK, 3X/DAY
  7. CABASERIL [Concomitant]
     Dosage: 1 MG, 2X/DAY
  8. APONAL [Concomitant]
     Dosage: UNK, 2X/DAY
  9. GABAPENTIN [Concomitant]
     Dosage: 300 MG, 3X/DAY
  10. ENADURA [Concomitant]
     Dosage: 10 MG, 2X/DAY
  11. DICLAC [Concomitant]
     Dosage: UNK, EVERY 2D

REACTIONS (7)
  - ANOREXIA [None]
  - BLOOD PRESSURE INCREASED [None]
  - FAECAL INCONTINENCE [None]
  - INFLUENZA LIKE ILLNESS [None]
  - LEUKOPENIA [None]
  - URINARY INCONTINENCE [None]
  - WEIGHT DECREASED [None]
